FAERS Safety Report 17811945 (Version 1)
Quarter: 2020Q2

REPORT INFORMATION
  Report Type: Spontaneous
  Country: US (occurrence: US)
  Receive Date: 20200521
  Receipt Date: 20200521
  Transmission Date: 20200714
  Serious: Yes (Other)
  Sender: FDA-Public Use
  Company Number: US-ASTRAZENECA-2020SE64057

PATIENT
  Age: 23174 Day
  Sex: Male

DRUGS (1)
  1. BUDESONIDE AND FORMOTEROL [Suspect]
     Active Substance: BUDESONIDE\FORMOTEROL
     Dosage: 160/4.5 TWO PUFFS TWICE EACH DAY FOR 2 OR 3 YEARS
     Route: 055
     Dates: start: 20200428

REACTIONS (6)
  - Intentional device misuse [Unknown]
  - Cardiac disorder [Not Recovered/Not Resolved]
  - Expired device used [Unknown]
  - Visual impairment [Not Recovered/Not Resolved]
  - Device issue [Unknown]
  - Hypoacusis [Not Recovered/Not Resolved]

NARRATIVE: CASE EVENT DATE: 20200428
